FAERS Safety Report 22248567 (Version 4)
Quarter: 2024Q3

REPORT INFORMATION
  Report Type: Report from Study
  Country: US (occurrence: US)
  Receive Date: 20230425
  Receipt Date: 20240830
  Transmission Date: 20241016
  Serious: Yes (Hospitalization)
  Sender: NOVARTIS
  Company Number: US-002147023-NVSC2023US090193

PATIENT
  Age: 59 Year
  Sex: Male

DRUGS (1)
  1. ENTRESTO [Suspect]
     Active Substance: SACUBITRIL\VALSARTAN
     Indication: Product used for unknown indication
     Dosage: UNK
     Route: 065

REACTIONS (8)
  - Nodular rash [Unknown]
  - Speech disorder [Unknown]
  - Rash [Unknown]
  - Skin mass [Unknown]
  - Insomnia [Unknown]
  - Blood pressure abnormal [Unknown]
  - Body temperature increased [Unknown]
  - Irritability [Unknown]

NARRATIVE: CASE EVENT DATE: 20230101
